FAERS Safety Report 17240572 (Version 1)
Quarter: 2020Q1

REPORT INFORMATION
  Report Type: Spontaneous
  Country: ES (occurrence: ES)
  Receive Date: 20200107
  Receipt Date: 20200107
  Transmission Date: 20200409
  Serious: Yes (Hospitalization)
  Sender: FDA-Public Use
  Company Number: ES-TEVA-2020-ES-1163401

PATIENT
  Age: 90 Year
  Sex: Female

DRUGS (2)
  1. GABAPENTINA (2641A) [Suspect]
     Active Substance: GABAPENTIN
     Indication: NEURALGIA
     Dosage: 300 MG PER EVERY 12 HOURS
     Route: 048
     Dates: start: 20190221, end: 20190301
  2. FENTANILO (1543A) [Concomitant]
     Active Substance: FENTANYL
     Dosage: 12,5MG/72H

REACTIONS (2)
  - Depressed level of consciousness [Recovered/Resolved]
  - Somnolence [Recovered/Resolved]

NARRATIVE: CASE EVENT DATE: 20190301
